FAERS Safety Report 9895112 (Version 2)
Quarter: 2014Q1

REPORT INFORMATION
  Report Type: Spontaneous
  Country: US (occurrence: US)
  Receive Date: 20140213
  Receipt Date: 20140213
  Transmission Date: 20141002
  Serious: No
  Sender: FDA-Public Use
  Company Number: US-BRISTOL-MYERS SQUIBB COMPANY-18703892

PATIENT
  Age: 54 Year
  Sex: Female
  Weight: 81.63 kg

DRUGS (1)
  1. ABATACEPT SUBQ INJECTION 125MG/ML [Suspect]
     Indication: RHEUMATOID ARTHRITIS
     Dosage: EXP DATE: MAY2014:LAST INJ:29APR2013
     Route: 058
     Dates: start: 20130318

REACTIONS (5)
  - Diarrhoea [Recovered/Resolved]
  - Neck pain [Unknown]
  - Gastric dilatation [Unknown]
  - Arthralgia [Unknown]
  - Joint swelling [Unknown]
